FAERS Safety Report 20762411 (Version 4)
Quarter: 2023Q1

REPORT INFORMATION
  Report Type: Spontaneous
  Country: US (occurrence: US)
  Receive Date: 20220428
  Receipt Date: 20230303
  Transmission Date: 20230418
  Serious: Yes (Disabling)
  Sender: FDA-Public Use
  Company Number: US-PFIZER INC-202200024428

PATIENT
  Age: 70 Year
  Sex: Female

DRUGS (1)
  1. XELJANZ XR [Suspect]
     Active Substance: TOFACITINIB CITRATE
     Dosage: 11 MG, 1X/DAY
     Route: 048

REACTIONS (7)
  - Back pain [Unknown]
  - Bedridden [Unknown]
  - Bronchitis [Unknown]
  - Speech disorder [Unknown]
  - Spinal stenosis [Unknown]
  - Back disorder [Unknown]
  - Dysstasia [Unknown]
